FAERS Safety Report 16928181 (Version 2)
Quarter: 2020Q1

REPORT INFORMATION
  Report Type: Spontaneous
  Country: US (occurrence: US)
  Receive Date: 20191017
  Receipt Date: 20200130
  Transmission Date: 20200409
  Serious: No
  Sender: FDA-Public Use
  Company Number: US-BIOGEN-2019BI00786724

PATIENT
  Sex: Female

DRUGS (1)
  1. TECFIDERA [Suspect]
     Active Substance: DIMETHYL FUMARATE
     Indication: MULTIPLE SCLEROSIS
     Route: 048
     Dates: start: 2013

REACTIONS (5)
  - Skin laceration [Unknown]
  - Intervertebral disc compression [Unknown]
  - Concussion [Unknown]
  - Therapeutic product effect decreased [Unknown]
  - Multiple sclerosis relapse [Unknown]
